FAERS Safety Report 18514843 (Version 1)
Quarter: 2020Q4

REPORT INFORMATION
  Report Type: Spontaneous
  Country: US (occurrence: US)
  Receive Date: 20201118
  Receipt Date: 20201118
  Transmission Date: 20210114
  Serious: No
  Sender: FDA-Public Use
  Company Number: US-UCBSA-2019048119

PATIENT
  Age: 58 Year
  Sex: Female

DRUGS (1)
  1. VIMPAT [Suspect]
     Active Substance: LACOSAMIDE
     Indication: EPILEPSY
     Dosage: UNK
     Dates: start: 200911

REACTIONS (3)
  - Sciatic nerve injury [Not Recovered/Not Resolved]
  - Gait inability [Unknown]
  - Back injury [Unknown]

NARRATIVE: CASE EVENT DATE: 201911
